FAERS Safety Report 6454116-9 (Version None)
Quarter: 2009Q4

REPORT INFORMATION
  Report Type: 
  Country: None (occurrence: None)
  Receive Date: 20091117
  Receipt Date: 20091106
  Transmission Date: 20100525
  Serious: Yes (Death)
  Sender: FDA-Public Use
  Company Number: AE 2009-132

PATIENT
  Age: 100 Year
  Sex: Female

DRUGS (7)
  1. FAZACLO ODT [Suspect]
     Indication: ABNORMAL BEHAVIOUR
     Dosage: 75 MG DAILY, PO
     Route: 048
     Dates: start: 20090828, end: 20090911
  2. FAZACLO ODT [Suspect]
     Indication: DEMENTIA
     Dosage: 75 MG DAILY, PO
     Route: 048
     Dates: start: 20090828, end: 20090911
  3. FAZACLO ODT [Suspect]
     Indication: PSYCHOTIC DISORDER
     Dosage: 75 MG DAILY, PO
     Route: 048
     Dates: start: 20090828, end: 20090911
  4. LASIX [Concomitant]
  5. LEVOTHYROXINE SODIUM [Concomitant]
  6. PROTONIX [Concomitant]
  7. POTASSIUM CHLORIDE [Concomitant]

REACTIONS (1)
  - DEATH [None]
